FAERS Safety Report 4837385-8 (Version None)
Quarter: 2005Q4

REPORT INFORMATION
  Report Type: 
  Country: None (occurrence: None)
  Receive Date: 20051122
  Receipt Date: 20051114
  Transmission Date: 20060501
  Serious: Yes (Other)
  Sender: FDA-Public Use
  Company Number: 2005130614

PATIENT
  Age: 73 Year
  Sex: Female

DRUGS (2)
  1. MEDROXYPROGESTERONE ACETATE [Suspect]
     Indication: BREAST CANCER
     Dosage: ORAL
     Route: 048
     Dates: end: 20040301
  2. TAMOXIFEN CITRATE [Concomitant]

REACTIONS (4)
  - BREAST CANCER [None]
  - CARDIAC FAILURE [None]
  - CEREBRAL INFARCTION [None]
  - METASTASES TO LYMPH NODES [None]
